FAERS Safety Report 10375452 (Version 1)
Quarter: 2014Q3

REPORT INFORMATION
  Report Type: Spontaneous
  Country: TR (occurrence: None)
  Receive Date: 20140806
  Receipt Date: 20140806
  Transmission Date: 20150326
  Serious: Yes (Death, Hospitalization)
  Sender: FDA-Public Use
  Company Number: 1432614

PATIENT
  Age: 55 Year
  Sex: Female

DRUGS (2)
  1. ARTIFICIAL TEARS [Concomitant]
     Active Substance: GLYCERIN\HYPROMELLOSES\POLYETHYLENE GLYCOL 400
  2. OXCARBAZEPINE TABLETS, 300 MG [Suspect]
     Active Substance: OXCARBAZEPINE
     Indication: EPILEPSY

REACTIONS (4)
  - Septic shock [None]
  - Neutropenia [None]
  - Vanishing bile duct syndrome [None]
  - Histiocytosis haematophagic [None]
